FAERS Safety Report 7298365-9 (Version None)
Quarter: 2011Q1

REPORT INFORMATION
  Report Type: 
  Country: None (occurrence: None)
  Receive Date: 20110217
  Receipt Date: 20110210
  Transmission Date: 20110831
  Serious: Yes (Death)
  Sender: FDA-Public Use
  Company Number: FR-JNJFOC-20110203409

PATIENT
  Age: 22 Year
  Sex: Male

DRUGS (1)
  1. REMICADE [Suspect]
     Indication: COLITIS ULCERATIVE
     Route: 042

REACTIONS (2)
  - DRUG INEFFECTIVE [None]
  - CEREBRAL THROMBOSIS [None]
